FAERS Safety Report 24607630 (Version 1)
Quarter: 2024Q4

REPORT INFORMATION
  Report Type: Spontaneous
  Country: FR (occurrence: FR)
  Receive Date: 20241112
  Receipt Date: 20241112
  Transmission Date: 20250115
  Serious: Yes (Hospitalization)
  Sender: RANBAXY
  Company Number: FR-SUN PHARMACEUTICAL INDUSTRIES LTD-2024RR-477575

PATIENT
  Age: 85 Year
  Sex: Male
  Weight: 80 kg

DRUGS (4)
  1. PAROXETINE [Interacting]
     Active Substance: PAROXETINE
     Indication: Mixed anxiety and depressive disorder
     Dosage: 1 DOSAGE FORM, DAILY
     Route: 048
     Dates: start: 20230908, end: 202404
  2. PAROXETINE [Interacting]
     Active Substance: PAROXETINE
     Dosage: 2 DOSAGE FORM, DAILY
     Route: 048
     Dates: start: 202404
  3. ELIQUIS [Interacting]
     Active Substance: APIXABAN
     Indication: Atrial fibrillation
     Dosage: 2.5 MILLIGRAM, BID
     Route: 048
     Dates: start: 20191104, end: 20200114
  4. ELIQUIS [Interacting]
     Active Substance: APIXABAN
     Dosage: 1 DOSAGE FORM, BID
     Route: 048
     Dates: start: 20200115, end: 20240507

REACTIONS (1)
  - Haematoma muscle [Recovered/Resolved]

NARRATIVE: CASE EVENT DATE: 20240507
